FAERS Safety Report 24768187 (Version 1)
Quarter: 2024Q4

REPORT INFORMATION
  Report Type: Spontaneous
  Country: US (occurrence: None)
  Receive Date: 20241223
  Receipt Date: 20241223
  Transmission Date: 20250114
  Serious: Yes (Hospitalization)
  Sender: Public
  Company Number: None

PATIENT
  Age: 23 Year
  Sex: Female

DRUGS (1)
  1. IRON DEXTRAN [Suspect]
     Active Substance: IRON DEXTRAN
     Indication: Iron deficiency anaemia
     Dosage: OTHER FREQUENCY : ONCE;?
     Route: 042
     Dates: start: 20241221, end: 20241221

REACTIONS (6)
  - Dyspnoea [None]
  - Hyperhidrosis [None]
  - Therapy interrupted [None]
  - Vomiting [None]
  - Pregnancy [None]
  - Foetal heart rate abnormal [None]

NARRATIVE: CASE EVENT DATE: 20241221
